FAERS Safety Report 9308676 (Version 1)
Quarter: 2013Q2

REPORT INFORMATION
  Report Type: Spontaneous
  Country: BE (occurrence: BE)
  Receive Date: 20130524
  Receipt Date: 20130524
  Transmission Date: 20140414
  Serious: Yes (Other)
  Sender: FDA-Public Use
  Company Number: BE-JNJFOC-20130512173

PATIENT
  Sex: Male

DRUGS (1)
  1. NICORETTE MICROTAB 2MG [Suspect]
     Indication: PRODUCT USED FOR UNKNOWN INDICATION
     Route: 060
     Dates: start: 2002, end: 2013

REACTIONS (2)
  - Nicotine dependence [Recovered/Resolved]
  - Intentional drug misuse [Unknown]
